FAERS Safety Report 4828793-X (Version None)
Quarter: 2005Q4

REPORT INFORMATION
  Report Type: 
  Country: None (occurrence: None)
  Receive Date: 20051014
  Receipt Date: 20050825
  Transmission Date: 20060501
  Serious: Yes (Hospitalization)
  Sender: FDA-Public Use
  Company Number: 2005SP001226

PATIENT
  Age: 69 Year
  Sex: Male
  Weight: 53.5244 kg

DRUGS (8)
  1. LUNESTA [Suspect]
     Dosage: 3 MG; HS; ORAL, 2 MG; HS; ORAL, 3 MG; HS; ORAL
     Route: 048
     Dates: start: 20050501, end: 20050501
  2. LUNESTA [Suspect]
     Dosage: 3 MG; HS; ORAL, 2 MG; HS; ORAL, 3 MG; HS; ORAL
     Route: 048
     Dates: start: 20050501, end: 20050501
  3. LUNESTA [Suspect]
     Dosage: 3 MG; HS; ORAL, 2 MG; HS; ORAL, 3 MG; HS; ORAL
     Route: 048
     Dates: start: 20050101
  4. PANGESTYNE [Concomitant]
  5. PROZAC [Concomitant]
  6. REMERON [Concomitant]
  7. DIOVAN [Concomitant]
  8. DARVOCET [Concomitant]

REACTIONS (2)
  - ABDOMINAL PAIN [None]
  - SOMNOLENCE [None]
